FAERS Safety Report 14100585 (Version 2)
Quarter: 2018Q1

REPORT INFORMATION
  Report Type: Report from Study
  Country: US (occurrence: US)
  Receive Date: 20171017
  Receipt Date: 20180110
  Transmission Date: 20180508
  Serious: Yes (Other)
  Sender: FDA-Public Use
  Company Number: US-UCBSA-2017041216

PATIENT
  Age: 59 Year
  Sex: Female
  Weight: 55.3 kg

DRUGS (3)
  1. LEVETIRACETAM. [Suspect]
     Active Substance: LEVETIRACETAM
     Dosage: 500 MG, 2X/DAY (BID)
     Route: 048
     Dates: start: 201703, end: 201707
  2. OXCARBAZEPINE. [Suspect]
     Active Substance: OXCARBAZEPINE
     Indication: PRODUCT USED FOR UNKNOWN INDICATION
     Dosage: RECEIVED FOR 2 WEEKS
     Dates: start: 201707, end: 2017
  3. LEVETIRACETAM. [Suspect]
     Active Substance: LEVETIRACETAM
     Indication: PARTIAL SEIZURES
     Dosage: 250 MG, 2X/DAY (BID)
     Route: 048
     Dates: start: 201701, end: 2017

REACTIONS (3)
  - Seizure [Recovered/Resolved]
  - Leukopenia [Unknown]
  - Rash [Recovered/Resolved]

NARRATIVE: CASE EVENT DATE: 2017
